FAERS Safety Report 13983385 (Version 1)
Quarter: 2017Q3

REPORT INFORMATION
  Report Type: Spontaneous
  Country: US (occurrence: US)
  Receive Date: 20170918
  Receipt Date: 20170918
  Transmission Date: 20171128
  Serious: No
  Sender: FDA-Public Use
  Company Number: US-RECKITT BENCKISER HEALTHCARE INT LIMITED-RB-87222-2017

PATIENT
  Sex: Female

DRUGS (1)
  1. MUCINEX D MAXIMUM STRENGTH [Suspect]
     Active Substance: GUAIFENESIN\PSEUDOEPHEDRINE HYDROCHLORIDE
     Indication: PRODUCT USED FOR UNKNOWN INDICATION
     Dosage: TOOK 1 TABLET AT 3 P.M. AND THEN AGAIN AT 12 A.M.
     Route: 065
     Dates: start: 20170207

REACTIONS (5)
  - Expired product administered [Unknown]
  - Hypoaesthesia [Unknown]
  - Dizziness [Unknown]
  - Inappropriate schedule of drug administration [Unknown]
  - Insomnia [Unknown]

NARRATIVE: CASE EVENT DATE: 201702
